FAERS Safety Report 8802107 (Version 2)
Quarter: 2015Q2

REPORT INFORMATION
  Report Type: Report from Study
  Country: US (occurrence: US)
  Receive Date: 20120921
  Receipt Date: 20150629
  Transmission Date: 20150821
  Serious: Yes (Death)
  Sender: FDA-Public Use
  Company Number: US-ROCHE-1102259

PATIENT
  Sex: Male
  Weight: 102.15 kg

DRUGS (26)
  1. OXALIPLATIN. [Concomitant]
     Active Substance: OXALIPLATIN
     Route: 065
  2. CAPECITABINE. [Concomitant]
     Active Substance: CAPECITABINE
     Dosage: 3 TABS A.M. AND 2 TABS P.M.
     Route: 048
  3. ANZEMET [Concomitant]
     Active Substance: DOLASETRON MESYLATE
     Route: 042
  4. FLUOROURACIL. [Concomitant]
     Active Substance: FLUOROURACIL
     Route: 042
  5. ZANTAC [Concomitant]
     Active Substance: RANITIDINE HYDROCHLORIDE
     Route: 042
  6. SANDOSTATIN [Concomitant]
     Active Substance: OCTREOTIDE ACETATE
     Route: 030
  7. IRINOTECAN [Concomitant]
     Active Substance: IRINOTECAN
     Dosage: 180 MG/M2
     Route: 065
  8. TYLENOL [Concomitant]
     Active Substance: ACETAMINOPHEN
  9. LEUCOVORIN [Concomitant]
     Active Substance: LEUCOVORIN
     Route: 065
  10. CALCIUM GLUCONATE. [Concomitant]
     Active Substance: CALCIUM GLUCONATE
  11. MEGACE [Concomitant]
     Active Substance: MEGESTROL ACETATE
  12. CLINDAMYCIN [Concomitant]
     Active Substance: CLINDAMYCIN\CLINDAMYCIN PHOSPHATE
  13. LOMOTIL (UNITED STATES) [Concomitant]
  14. AVASTIN [Suspect]
     Active Substance: BEVACIZUMAB
     Indication: METASTASES TO LIVER
     Route: 042
     Dates: start: 20040701
  15. DECADRON [Concomitant]
     Active Substance: DEXAMETHASONE
     Route: 042
  16. FLUOROURACIL. [Concomitant]
     Active Substance: FLUOROURACIL
     Route: 042
  17. FLUOROURACIL. [Concomitant]
     Active Substance: FLUOROURACIL
     Route: 042
  18. BENADRYL [Concomitant]
     Active Substance: DIPHENHYDRAMINE HYDROCHLORIDE
     Route: 042
  19. PRILOSEC [Concomitant]
     Active Substance: OMEPRAZOLE MAGNESIUM
  20. AVASTIN [Suspect]
     Active Substance: BEVACIZUMAB
     Indication: COLON CANCER
  21. MAGNESIUM SULPHATE [Concomitant]
     Active Substance: MAGNESIUM SULFATE
     Route: 042
  22. AVASTIN [Suspect]
     Active Substance: BEVACIZUMAB
     Indication: COLON CANCER
     Route: 042
     Dates: start: 20040923
  23. ATROPINE [Concomitant]
     Active Substance: ATROPINE
     Route: 042
  24. IMODIUM [Concomitant]
     Active Substance: LOPERAMIDE HYDROCHLORIDE
  25. PERCOCET [Concomitant]
     Active Substance: ACETAMINOPHEN\OXYCODONE HYDROCHLORIDE
  26. OXYCODONE [Concomitant]
     Active Substance: OXYCODONE

REACTIONS (22)
  - Death [Fatal]
  - Squamous cell carcinoma [Unknown]
  - Abdominal discomfort [Unknown]
  - Back pain [Unknown]
  - Breath odour [Unknown]
  - Off label use [Unknown]
  - Trismus [Unknown]
  - Mouth ulceration [Unknown]
  - Fatigue [Unknown]
  - Atrophy [Unknown]
  - Abdominal pain upper [Unknown]
  - Disease progression [Unknown]
  - Cholelithiasis [Unknown]
  - Depression [Unknown]
  - Decreased appetite [Unknown]
  - Brain scan abnormal [Unknown]
  - Anaemia [Recovered/Resolved]
  - Retroperitoneal lymphadenopathy [Unknown]
  - Asthenia [Unknown]
  - Tooth socket haemorrhage [Unknown]
  - Diarrhoea [Recovered/Resolved]
  - Neuropathy peripheral [Not Recovered/Not Resolved]
